FAERS Safety Report 14262091 (Version 1)
Quarter: 2017Q4

REPORT INFORMATION
  Report Type: Spontaneous
  Country: DE (occurrence: DE)
  Receive Date: 20171208
  Receipt Date: 20171208
  Transmission Date: 20180321
  Serious: Yes (Other)
  Sender: FDA-Public Use
  Company Number: DE-CIPLA LTD.-2017DE22589

PATIENT

DRUGS (12)
  1. NAB-PACLITAXEL [Suspect]
     Active Substance: PACLITAXEL
     Indication: ADENOCARCINOMA PANCREAS
     Dosage: UNK, 2 CYCLES
  2. IRINOTECAN [Suspect]
     Active Substance: IRINOTECAN
     Dosage: UNK
     Route: 065
  3. OXALIPLATIN. [Suspect]
     Active Substance: OXALIPLATIN
     Dosage: UNK
     Route: 065
  4. OXALIPLATIN. [Suspect]
     Active Substance: OXALIPLATIN
     Indication: ADENOCARCINOMA PANCREAS
     Dosage: UNK, 6 CYCLES
  5. GEMCITABINE [Suspect]
     Active Substance: GEMCITABINE\GEMCITABINE HYDROCHLORIDE
     Indication: ADENOCARCINOMA PANCREAS
     Dosage: UNK, 2 CYCLES
  6. DOXORUBICIN [Suspect]
     Active Substance: DOXORUBICIN
     Indication: ADENOCARCINOMA PANCREAS
     Dosage: 1.5 MG/M2, AT INTERVALS OF SIX WEEKS
     Route: 033
  7. LEUCOVORIN. [Suspect]
     Active Substance: LEUCOVORIN
     Dosage: UNK
     Route: 065
  8. IRINOTECAN [Suspect]
     Active Substance: IRINOTECAN
     Indication: ADENOCARCINOMA PANCREAS
     Dosage: UNK, 6 CYCLES
  9. FLUOROURACIL. [Suspect]
     Active Substance: FLUOROURACIL
     Indication: ADENOCARCINOMA PANCREAS
     Dosage: UNK, 6 CYCLES
  10. FLUOROURACIL. [Suspect]
     Active Substance: FLUOROURACIL
     Dosage: UNK
     Route: 065
  11. LEUCOVORIN. [Suspect]
     Active Substance: LEUCOVORIN
     Indication: ADENOCARCINOMA PANCREAS
     Dosage: UNK, 6 CYCLES
  12. CISPLATIN. [Suspect]
     Active Substance: CISPLATIN
     Indication: ADENOCARCINOMA PANCREAS
     Dosage: 7.5 MG/M2, AT INTERVALS OF SIX WEEKS
     Route: 033

REACTIONS (2)
  - Metastases to lung [Unknown]
  - General physical health deterioration [Unknown]
